FAERS Safety Report 7346751-0 (Version None)
Quarter: 2011Q1

REPORT INFORMATION
  Report Type: 
  Country: None (occurrence: None)
  Receive Date: 20110311
  Receipt Date: 20101115
  Transmission Date: 20110831
  Serious: Yes (Other)
  Sender: FDA-Public Use
  Company Number: US-JNJFOC-20101206315

PATIENT

DRUGS (4)
  1. PROCHLORPERAZINE [Concomitant]
     Indication: PREMEDICATION
     Dosage: ORAL OR INTRAVENOUSNO MORE THAN 30 MINUTES PRIOR TO DOXORUBICIN HYDROCHLORIDE
     Route: 065
  2. BORTEZOMIB [Suspect]
     Indication: BREAST CANCER METASTATIC
     Dosage: DAYS 1, 4, 8 AND 11 OF EACH 21-DAY CYCLE
     Route: 042
  3. PYRIDOXINE [Concomitant]
     Indication: PRODUCT USED FOR UNKNOWN INDICATION
     Dosage: BEGINNING UP TO ONE WEEK PRIOR TO THE INITIATION OF DOXORUBICIN HYDROCHLORIDE/BOTEZOMIB TREATMENT
     Route: 048
  4. DOXORUBICIN [Suspect]
     Indication: BREAST CANCER METASTATIC
     Dosage: DAY 4 OF EACH CYCLE
     Route: 042

REACTIONS (1)
  - HYPOALBUMINAEMIA [None]
